FAERS Safety Report 6951722 (Version 4)
Quarter: 2013Q1

REPORT INFORMATION
  Report Type: Other
  Country: IT (occurrence: IT)
  Receive Date: 20090325
  Receipt Date: 20130305
  Transmission Date: 20140127
  Serious: Yes (Death)
  Sender: FDA-Public Use
  Company Number: IT-BRISTOL-MYERS SQUIBB COMPANY-14558001

PATIENT
  Age: 77 Year
  Sex: Male

DRUGS (8)
  1. METFORMIN HCL [Suspect]
     Indication: DIABETES MELLITUS
     Dosage: AROUND FIVE YEARS
  2. ERLOTINIB [Suspect]
     Indication: LUNG NEOPLASM MALIGNANT
     Dates: start: 20070802
  3. GLIBENCLAMIDE [Concomitant]
     Dosage: AROUND FIVE YEARS?(0800, 1300, 2000H)
  4. REPAGLINIDE [Concomitant]
     Dosage: AROUND FIVE YEARS?(0800, 1300,2000H).
  5. DOXAZOSIN [Concomitant]
     Dosage: (2100H).
  6. OMEPRAZOLE [Concomitant]
     Dosage: (0800H).
  7. FUROSEMIDE [Concomitant]
     Dosage: AROUND FIVE YEARS?(0800H).
  8. PREDNISONE [Concomitant]
     Dosage: (0800H).

REACTIONS (3)
  - Lactic acidosis [Fatal]
  - Drug-induced liver injury [Fatal]
  - Renal impairment [Fatal]
